FAERS Safety Report 6009093-1 (Version None)
Quarter: 2008Q4

REPORT INFORMATION
  Report Type: 
  Country: None (occurrence: None)
  Receive Date: 20081216
  Receipt Date: 20081204
  Transmission Date: 20090506
  Serious: Yes (Hospitalization)
  Sender: FDA-Public Use
  Company Number: 081118-0000929

PATIENT
  Age: 3 Month
  Sex: Male

DRUGS (2)
  1. COSMEGEN [Suspect]
     Indication: FIBROSARCOMA
     Dosage: IV
     Route: 042
     Dates: start: 20070901, end: 20071101
  2. ONCOVIN [Suspect]
     Indication: FIBROSARCOMA
     Dosage: IV
     Route: 042

REACTIONS (2)
  - BONE MARROW FAILURE [None]
  - MICROANGIOPATHY [None]
